FAERS Safety Report 19269959 (Version 2)
Quarter: 2021Q2

REPORT INFORMATION
  Report Type: Spontaneous
  Country: US (occurrence: US)
  Receive Date: 20210518
  Receipt Date: 20210621
  Transmission Date: 20210717
  Serious: No
  Sender: FDA-Public Use
  Company Number: US-BAYER-2021-140938

PATIENT
  Age: 50 Year
  Sex: Male

DRUGS (2)
  1. KOGENATE FS [Suspect]
     Active Substance: ANTIHEMOPHILIC FACTOR, HUMAN RECOMBINANT
     Dosage: UNK; CALLED FOR A FACTOR INFUSION. DOSE GIVEN AS ORDERED
     Route: 042
  2. KOGENATE FS [Suspect]
     Active Substance: ANTIHEMOPHILIC FACTOR, HUMAN RECOMBINANT
     Dosage: 6475 IU
     Route: 042

REACTIONS (2)
  - Skin warm [Recovered/Resolved]
  - Groin pain [Recovered/Resolved]

NARRATIVE: CASE EVENT DATE: 202105
